FAERS Safety Report 7235364-7 (Version None)
Quarter: 2011Q1

REPORT INFORMATION
  Report Type: 
  Country: None (occurrence: None)
  Receive Date: 20110120
  Receipt Date: 20110111
  Transmission Date: 20110831
  Serious: Yes (Other)
  Sender: FDA-Public Use
  Company Number: US-JNJFOC-20110104394

PATIENT
  Sex: Female
  Weight: 65.32 kg

DRUGS (5)
  1. ELMIRON [Suspect]
     Indication: CYSTITIS INTERSTITIAL
     Route: 048
  2. ZOLPIDEM [Concomitant]
     Indication: SLEEP DISORDER
     Route: 048
  3. NSAID (UNSPECIFIED) [Concomitant]
     Route: 065
  4. SIMVASTATIN [Concomitant]
     Indication: BLOOD CHOLESTEROL ABNORMAL
     Route: 048
  5. HYDROXYZINE [Concomitant]
     Indication: CYSTITIS INTERSTITIAL
     Route: 048

REACTIONS (10)
  - PAIN IN EXTREMITY [None]
  - GASTROINTESTINAL INFLAMMATION [None]
  - ARTHRALGIA [None]
  - AUTOIMMUNE DISORDER [None]
  - GASTROINTESTINAL MOTILITY DISORDER [None]
  - PAINFUL DEFAECATION [None]
  - VITAMIN D DEFICIENCY [None]
  - BACK PAIN [None]
  - CONSTIPATION [None]
  - MUCOUS STOOLS [None]
